FAERS Safety Report 6390070-6 (Version None)
Quarter: 2009Q4

REPORT INFORMATION
  Report Type: 
  Country: None (occurrence: None)
  Receive Date: 20091006
  Receipt Date: 20090925
  Transmission Date: 20100525
  Serious: Yes (Hospitalization)
  Sender: FDA-Public Use
  Company Number: FR-JNJFOC-20031105290

PATIENT
  Age: 42 Year
  Sex: Female

DRUGS (10)
  1. REMICADE [Suspect]
     Route: 042
     Dates: start: 20000524, end: 20031117
  2. REMICADE [Suspect]
     Route: 042
     Dates: start: 20000524, end: 20031117
  3. REMICADE [Suspect]
     Route: 042
     Dates: start: 20000524, end: 20031117
  4. REMICADE [Suspect]
     Route: 042
     Dates: start: 20000524, end: 20031117
  5. REMICADE [Suspect]
     Indication: RHEUMATOID ARTHRITIS
     Route: 042
     Dates: start: 20000524, end: 20031117
  6. DUPHALAC [Concomitant]
     Route: 048
  7. EFFERALGAN [Concomitant]
     Route: 048
  8. LEVOTHYROXINE SODIUM [Concomitant]
     Route: 048
  9. LOXEN [Concomitant]
     Route: 048
  10. TAREG [Concomitant]
     Route: 048

REACTIONS (8)
  - EAR INFECTION [None]
  - ERYSIPELAS [None]
  - MENINGITIS BACTERIAL [None]
  - PETECHIAE [None]
  - PSEUDOPOLYP [None]
  - PSORIASIS [None]
  - RENAL FAILURE [None]
  - VASCULITIS [None]
